FAERS Safety Report 4424001-2 (Version None)
Quarter: 2004Q3

REPORT INFORMATION
  Report Type: 
  Country: None (occurrence: None)
  Receive Date: 20040812
  Receipt Date: 20040803
  Transmission Date: 20050211
  Serious: Yes (Hospitalization)
  Sender: FDA-Public Use
  Company Number: ES-BRISTOL-MYERS SQUIBB COMPANY-12658704

PATIENT
  Age: 44 Year
  Sex: Male

DRUGS (2)
  1. ATAZANAVIR [Suspect]
     Indication: HIV INFECTION
     Dosage: THERAPY INTERRUPTED 19-JUL-2004 AND RE-STARTED 20-JUL-2004.
     Dates: start: 20010509
  2. COMBIVIR [Suspect]
     Indication: HIV INFECTION
     Dosage: ^450 MG^  THERAPY INTERRUPTED 19-JUL-2004 AND RE-STARTED 20-JUL-2004.
     Dates: start: 20010509

REACTIONS (1)
  - ASEPTIC NECROSIS BONE [None]
